FAERS Safety Report 9192491 (Version 3)
Quarter: 2014Q1

REPORT INFORMATION
  Report Type: Spontaneous
  Country: US (occurrence: None)
  Receive Date: 20120703
  Receipt Date: 20130107
  Transmission Date: 20141002
  Serious: Yes (Other)
  Sender: FDA-Public Use
  Company Number: PHEH2012US009252

PATIENT
  Age: 64 Year
  Sex: Female
  Weight: 77.1 kg

DRUGS (10)
  1. GILENYA [Suspect]
     Indication: MULTIPLE SCLEROSIS
     Route: 048
     Dates: start: 20120329, end: 20120426
  2. CITALOPRAM (CITALOPRAM) [Concomitant]
  3. BACLOFEN (BACLOFEN) [Concomitant]
  4. MULTIVITAMINS (ASCORBIC ACID, ERGOCALCIFEROL, FOLIC ACID, NICOTINAMIDE, PANTHENOL, RETINOL, RIBOFLAVIN, THIAMINE HYDROCHLORIDE [Concomitant]
  5. CALCIUM (CALCIIUM) [Concomitant]
  6. FISH OIL (FISH OIL) [Concomitant]
  7. RESVERATROL (RESVERATROL) [Concomitant]
  8. TYLENOL (PARACETAMOL) [Concomitant]
  9. IBUPROFEN (IBUPROFEN) [Concomitant]
  10. ALEVE (NAPROXEN SODIUM) [Concomitant]

REACTIONS (4)
  - Hypokinesia [None]
  - Gait disturbance [None]
  - Muscle spasms [None]
  - Pain in extremity [None]
